FAERS Safety Report 7050319-3 (Version None)
Quarter: 2010Q4

REPORT INFORMATION
  Report Type: 
  Country: None (occurrence: None)
  Receive Date: 20101018
  Receipt Date: 20101011
  Transmission Date: 20110411
  Serious: Yes (Hospitalization)
  Sender: FDA-Public Use
  Company Number: US-AMGEN GMBH-KDL444765

PATIENT

DRUGS (7)
  1. PROLIA [Suspect]
     Indication: OSTEOPOROSIS POSTMENOPAUSAL
     Dosage: 60 MG, Q6MO
     Dates: start: 20101005
  2. ACETAMINOPHEN [Concomitant]
     Dosage: 500 MG, UNK
  3. ALLOPURINOL [Concomitant]
     Dosage: UNK UNK, UNK
  4. UNSPECIFIED PAIN MEDICATION [Concomitant]
     Dosage: UNK UNK, UNK
  5. ERGOCALCIFEROL [Concomitant]
     Dosage: UNK UNK, UNK
  6. CALCIUM [Concomitant]
     Dosage: UNK UNK, UNK
  7. ATENOLOL [Concomitant]
     Dosage: UNK UNK, UNK

REACTIONS (1)
  - RENAL FAILURE [None]
